FAERS Safety Report 7145392-8 (Version None)
Quarter: 2010Q4

REPORT INFORMATION
  Report Type: 
  Country: None (occurrence: None)
  Receive Date: 20101208
  Receipt Date: 20101201
  Transmission Date: 20110411
  Serious: Yes (Death, Hospitalization, Other)
  Sender: FDA-Public Use
  Company Number: US-AMGEN-QUU416377

PATIENT

DRUGS (13)
  1. NPLATE [Suspect]
     Indication: THROMBOCYTOPENIA
     Dosage: 750 A?G, QWK
     Route: 058
     Dates: start: 20100428, end: 20100602
  2. NPLATE [Suspect]
     Indication: IDIOPATHIC THROMBOCYTOPENIC PURPURA
     Dosage: 750 A?G, QWK
     Route: 058
     Dates: start: 20100428, end: 20100525
  3. NPLATE [Suspect]
     Dosage: 750 A?G, QWK
     Route: 058
     Dates: start: 20100428, end: 20100525
  4. NPLATE [Suspect]
     Dosage: 750 A?G, QWK
     Route: 058
     Dates: start: 20100428, end: 20100525
  5. NPLATE [Suspect]
     Dosage: 750 A?G, QWK
     Route: 058
     Dates: start: 20100428, end: 20100525
  6. NPLATE [Suspect]
     Dosage: 750 A?G, QWK
     Route: 058
     Dates: start: 20100428, end: 20100525
  7. NPLATE [Suspect]
     Dosage: 750 A?G, QWK
     Route: 058
     Dates: start: 20100428, end: 20100525
  8. NPLATE [Suspect]
     Dosage: 750 A?G, QWK
     Route: 058
     Dates: start: 20100428, end: 20100525
  9. NPLATE [Suspect]
     Dates: start: 20100428, end: 20100602
  10. CORTICOSTEROID NOS [Concomitant]
     Dosage: UNK UNK, UNK
     Dates: start: 20100401
  11. LENALIDOMIDE [Concomitant]
     Dosage: 10 MG, UNK
     Dates: start: 20100406, end: 20100601
  12. PREDNISONE [Concomitant]
     Dosage: 5 MG, UNK
     Dates: start: 20100511, end: 20100521
  13. DEXAMETHASONE [Concomitant]
     Dosage: UNK UNK, UNK
     Dates: start: 20100522, end: 20100525

REACTIONS (6)
  - ACUTE LEUKAEMIA [None]
  - BONE MARROW RETICULIN FIBROSIS [None]
  - CHRONIC LYMPHOCYTIC LEUKAEMIA TRANSFORMATION [None]
  - DRUG INEFFECTIVE [None]
  - MYELODYSPLASTIC SYNDROME TRANSFORMATION [None]
  - REFRACTORY ANAEMIA WITH AN EXCESS OF BLASTS [None]
